FAERS Safety Report 7914879-X (Version None)
Quarter: 2011Q4

REPORT INFORMATION
  Report Type: 
  Country: None (occurrence: None)
  Receive Date: 20111115
  Receipt Date: 20111101
  Transmission Date: 20120403
  Serious: Yes (Hospitalization, Disabling, Other)
  Sender: FDA-Public Use
  Company Number: US-ROCHE-744418

PATIENT
  Sex: Female
  Weight: 32.9 kg

DRUGS (12)
  1. BIO C [Concomitant]
     Dosage: BIO C WITH FLAVANOIDS 1/2 2 X DAY.
  2. GLUTAMINE [Concomitant]
     Dosage: 4.8 G/TEASPOON. DOSE = 1 TEASPOON
  3. ZANTAC [Concomitant]
  4. SLIPPERY ELM [Concomitant]
     Dosage: DOSE: 1/4 TEASPOON
  5. RHODIOLA ROSEA [Concomitant]
  6. SLIPPERY ELM [Concomitant]
     Dosage: DOSE: 1/2 TEASPOON
  7. XELODA [Suspect]
     Indication: BRAIN STEM GLIOMA
     Dosage: LAST DOSE PRIOR TO SAE: 7/SEP/2010
     Route: 048
     Dates: start: 20100713, end: 20101109
  8. XELODA [Suspect]
     Route: 048
  9. L-CARNITINE [Concomitant]
     Dosage: 1.7 G/TEASPOON. DOSE = 1 TEASPOON
  10. ARNICA [Concomitant]
     Dosage: DRUG: ARNICA 30 C PELLETS AWAY FROM FOOD.
  11. CEFTRIAXONE [Concomitant]
  12. BOSWELLIA [Concomitant]

REACTIONS (4)
  - HYPOXIA [None]
  - TUMOUR NECROSIS [None]
  - DYSPNOEA [None]
  - ASPIRATION [None]
